FAERS Safety Report 17755016 (Version 1)
Quarter: 2020Q2

REPORT INFORMATION
  Report Type: Spontaneous
  Country: US (occurrence: US)
  Receive Date: 20200506
  Receipt Date: 20200506
  Transmission Date: 20200714
  Serious: Yes (Hospitalization)
  Sender: FDA-Public Use
  Company Number: None

PATIENT
  Age: 28 Year
  Sex: Female

DRUGS (1)
  1. EMGALITY [Suspect]
     Active Substance: GALCANEZUMAB-GNLM
     Indication: MIGRAINE
     Dosage: ?          OTHER FREQUENCY:Q28D;OTHER ROUTE:UNDER THE SKIN?
     Route: 058
     Dates: start: 20190529

REACTIONS (2)
  - Malaise [None]
  - Infection [None]

NARRATIVE: CASE EVENT DATE: 20200327
